FAERS Safety Report 5224190-6 (Version None)
Quarter: 2007Q1

REPORT INFORMATION
  Report Type: 
  Country: None (occurrence: None)
  Receive Date: 20061201
  Receipt Date: 20060907
  Transmission Date: 20070707
  Serious: No
  Sender: FDA-Public Use
  Company Number: 2006PV020862

PATIENT
  Age: 50 Year
  Sex: Female
  Weight: 97.5234 kg

DRUGS (3)
  1. BYETTA [Suspect]
     Indication: DIABETES MELLITUS NON-INSULIN-DEPENDENT
     Dosage: SEE IMAGE
     Route: 058
     Dates: start: 20060801, end: 20060901
  2. BYETTA [Suspect]
     Indication: DIABETES MELLITUS NON-INSULIN-DEPENDENT
     Dosage: SEE IMAGE
     Route: 058
     Dates: start: 20060901, end: 20060901
  3. GLYBURIDE [Concomitant]

REACTIONS (15)
  - BLOOD GLUCOSE DECREASED [None]
  - BLOOD GLUCOSE INCREASED [None]
  - CONFUSIONAL STATE [None]
  - CONSTIPATION [None]
  - DIARRHOEA [None]
  - FALL [None]
  - FEELING ABNORMAL [None]
  - FLUSHING [None]
  - INJECTION SITE BRUISING [None]
  - INJECTION SITE WARMTH [None]
  - NAUSEA [None]
  - PILOERECTION [None]
  - PYREXIA [None]
  - SOMNOLENCE [None]
  - WEIGHT FLUCTUATION [None]
